FAERS Safety Report 17190165 (Version 1)
Quarter: 2019Q4

REPORT INFORMATION
  Report Type: Spontaneous
  Country: GB (occurrence: GB)
  Receive Date: 20191223
  Receipt Date: 20191223
  Transmission Date: 20200122
  Serious: Yes (Hospitalization, Other)
  Sender: FDA-Public Use
  Company Number: GB-ACCORD-166364

PATIENT
  Age: 71 Year
  Sex: Female
  Weight: 56 kg

DRUGS (6)
  1. LETROZOLE. [Suspect]
     Active Substance: LETROZOLE
     Indication: OESTROGEN RECEPTOR POSITIVE BREAST CANCER
     Route: 048
     Dates: start: 20190912, end: 20191120
  2. AMITRIPTYLINE [Concomitant]
     Active Substance: AMITRIPTYLINE
  3. OMEPRAZOLE. [Concomitant]
     Active Substance: OMEPRAZOLE
  4. AMOXICILLIN SODIUM/CLAVULANATE POTASSIUM [Concomitant]
     Active Substance: AMOXICILLIN\CLAVULANATE POTASSIUM
  5. PROPRANOLOL [Concomitant]
     Active Substance: PROPRANOLOL HYDROCHLORIDE
  6. FLUCLOXACILLIN [Concomitant]
     Active Substance: FLUCLOXACILLIN

REACTIONS (6)
  - Jaundice [Unknown]
  - Faeces discoloured [Unknown]
  - Pruritus [Unknown]
  - Drug-induced liver injury [Recovering/Resolving]
  - Abdominal pain [Unknown]
  - Chromaturia [Unknown]

NARRATIVE: CASE EVENT DATE: 20190930
